FAERS Safety Report 8401729-0 (Version None)
Quarter: 2012Q2

REPORT INFORMATION
  Report Type: 
  Country: None (occurrence: None)
  Receive Date: 20120601
  Receipt Date: 20120526
  Transmission Date: 20120825
  Serious: Yes (Hospitalization, Other)
  Sender: FDA-Public Use
  Company Number: US-BAYER-201033749NA

PATIENT
  Age: 23 Year
  Sex: Female
  Weight: 68.027 kg

DRUGS (4)
  1. YAZ [Suspect]
     Indication: PRODUCT USED FOR UNKNOWN INDICATION
     Dosage: UNK UNK, UNK
     Route: 048
     Dates: start: 20040101, end: 20060101
  2. TRANXENE [Concomitant]
  3. YASMIN [Suspect]
     Indication: PRODUCT USED FOR UNKNOWN INDICATION
     Dosage: UNK UNK, UNK
     Route: 048
     Dates: start: 20030101, end: 20060101
  4. ZOLOFT [Concomitant]

REACTIONS (8)
  - DEPRESSION [None]
  - MENTAL DISORDER [None]
  - THROMBOSIS [None]
  - PULMONARY INFARCTION [None]
  - CHEST PAIN [None]
  - BULIMIA NERVOSA [None]
  - DYSPNOEA [None]
  - PULMONARY EMBOLISM [None]
